FAERS Safety Report 5048574-4 (Version None)
Quarter: 2006Q2

REPORT INFORMATION
  Report Type: 
  Country: None (occurrence: None)
  Receive Date: 20060601
  Receipt Date: 20060307
  Transmission Date: 20061013
  Serious: No
  Sender: FDA-Public Use
  Company Number: US200603001797

PATIENT
  Age: 36 Year
  Sex: Female

DRUGS (1)
  1. CYMBALTA [Suspect]
     Indication: PANIC DISORDER
     Dosage: 60 MG, ORAL
     Route: 048
     Dates: start: 20051011

REACTIONS (1)
  - DRUG EXPOSURE DURING PREGNANCY [None]
